FAERS Safety Report 20482075 (Version 2)
Quarter: 2022Q1

REPORT INFORMATION
  Report Type: Spontaneous
  Country: ES (occurrence: ES)
  Receive Date: 20220216
  Receipt Date: 20220223
  Transmission Date: 20220424
  Serious: Yes (Death, Other)
  Sender: FDA-Public Use
  Company Number: ES-GILEAD-2022-0569984

PATIENT
  Age: 72 Year
  Sex: Male

DRUGS (1)
  1. REMDESIVIR [Suspect]
     Active Substance: REMDESIVIR
     Indication: COVID-19 pneumonia
     Dosage: UNK
     Route: 065
     Dates: start: 20210903

REACTIONS (8)
  - Coma [Fatal]
  - Ill-defined disorder [Fatal]
  - Aspergillus infection [Unknown]
  - Diverticulitis [Unknown]
  - Therapy non-responder [Unknown]
  - Emphysema [Unknown]
  - Pyrexia [Unknown]
  - Haemodynamic instability [Unknown]

NARRATIVE: CASE EVENT DATE: 20210924
